FAERS Safety Report 14437031 (Version 1)
Quarter: 2018Q1

REPORT INFORMATION
  Report Type: Spontaneous
  Country: US (occurrence: US)
  Receive Date: 20180125
  Receipt Date: 20180125
  Transmission Date: 20180509
  Serious: No
  Sender: FDA-Public Use
  Company Number: None

PATIENT
  Sex: Female

DRUGS (1)
  1. TALTZ [Suspect]
     Active Substance: IXEKIZUMAB
     Indication: PSORIASIS
     Dosage: 80,G Q2WLS SQ?INTERRUPTED
     Route: 058
     Dates: start: 201701

REACTIONS (2)
  - Upper respiratory tract infection [None]
  - Fungal infection [None]
